FAERS Safety Report 8803526 (Version 1)
Quarter: 2012Q4

REPORT INFORMATION
  Report Type: 
  Country: CH (occurrence: CH)
  Receive Date: 20120924
  Receipt Date: 20120924
  Transmission Date: 20130627
  Serious: Yes (Hospitalization, Other)
  Sender: FDA-Public Use
  Company Number: CH-PAR PHARMACEUTICAL, INC-2012SCPR004627

PATIENT

DRUGS (5)
  1. CIPROFLOXACIN ER [Suspect]
     Indication: URINARY TRACT INFECTION
     Dosage: UNK, Unknown
     Route: 065
  2. OCTREOTIDE [Suspect]
     Indication: ACROMEGALY
     Dosage: 10 mg, every six weeks
     Route: 065
  3. COTRIMOXAZOLE [Suspect]
     Indication: URINARY TRACT INFECTION
     Dosage: UNK, Unknown
     Route: 065
  4. PENICILLIN NOS [Suspect]
     Indication: URINARY TRACT INFECTION ENTEROCOCCAL
     Dosage: UNK, Unknown
     Route: 065
  5. UNSPECIFIED INGREDIENT [Suspect]
     Indication: URINARY TRACT INFECTION ENTEROCOCCAL
     Dosage: UNK, Unknown
     Route: 065

REACTIONS (8)
  - Renal failure acute [Recovering/Resolving]
  - Kidney fibrosis [Recovering/Resolving]
  - Tubulointerstitial nephritis [Recovering/Resolving]
  - Nephropathy [Recovering/Resolving]
  - Hyperoxaluria [Recovered/Resolved]
  - Cholelithiasis [Unknown]
  - Citrobacter test positive [Unknown]
  - Weight decreased [Unknown]
